FAERS Safety Report 4559566-3 (Version None)
Quarter: 2005Q1

REPORT INFORMATION
  Report Type: 
  Country: None (occurrence: None)
  Receive Date: 20050124
  Receipt Date: 20050113
  Transmission Date: 20050727
  Serious: Yes (Hospitalization, Other)
  Sender: FDA-Public Use
  Company Number: AU-NOVOPROD-241611

PATIENT
  Age: 72 Year
  Sex: Male

DRUGS (1)
  1. MIXTARD HUMAN 70/30 [Suspect]
     Indication: DIABETES MELLITUS NON-INSULIN-DEPENDENT
     Dates: start: 20040101

REACTIONS (3)
  - BLOOD GLUCOSE FLUCTUATION [None]
  - HEART RATE IRREGULAR [None]
  - MYOCARDIAL INFARCTION [None]
